FAERS Safety Report 7952362-6 (Version None)
Quarter: 2011Q4

REPORT INFORMATION
  Report Type: 
  Country: None (occurrence: None)
  Receive Date: 20111201
  Receipt Date: 20111124
  Transmission Date: 20120403
  Serious: Yes (Other)
  Sender: FDA-Public Use
  Company Number: GB-MERCK-1111GBR00030

PATIENT
  Age: 70 Year
  Sex: Female

DRUGS (5)
  1. PRINIVIL [Suspect]
     Indication: HYPERTENSION
     Route: 048
     Dates: start: 20110805, end: 20110907
  2. VERAPAMIL [Suspect]
     Indication: ATRIAL FIBRILLATION
     Route: 065
  3. COZAAR [Suspect]
     Route: 048
     Dates: start: 20110907
  4. COZAAR [Suspect]
     Indication: HYPERTENSION
     Route: 048
     Dates: start: 20110922
  5. COZAAR [Suspect]
     Route: 048

REACTIONS (10)
  - ABDOMINAL PAIN [None]
  - ARTHRALGIA [None]
  - MUSCLE SPASMS [None]
  - URINARY INCONTINENCE [None]
  - SLEEP DISORDER [None]
  - COUGH [None]
  - FIBROMYALGIA [None]
  - MUSCULOSKELETAL PAIN [None]
  - DECREASED APPETITE [None]
  - DIARRHOEA [None]
